FAERS Safety Report 11500416 (Version 3)
Quarter: 2015Q4

REPORT INFORMATION
  Report Type: Report from Study
  Country: US (occurrence: US)
  Receive Date: 20150914
  Receipt Date: 20151007
  Transmission Date: 20160304
  Serious: Yes (Other)
  Sender: FDA-Public Use
  Company Number: US-BIOGENIDEC-2015BI121855

PATIENT
  Age: 60 Year
  Sex: Female
  Weight: 68 kg

DRUGS (25)
  1. ACETAMINOPHEN-CODEINE [Concomitant]
     Active Substance: ACETAMINOPHEN\CODEINE PHOSPHATE
  2. OXYBUTYNIN CHLORIDE ER [Concomitant]
     Active Substance: OXYBUTYNIN CHLORIDE
  3. ZYRTEC [Concomitant]
     Active Substance: CETIRIZINE HYDROCHLORIDE
  4. FIORICET [Concomitant]
     Active Substance: ACETAMINOPHEN\BUTALBITAL\CAFFEINE
  5. BUTALBITAL-ACETAMINOPHEN 50-325 [Concomitant]
  6. ADVIL [Concomitant]
     Active Substance: IBUPROFEN
  7. VITAMIN B COMPLEX [Concomitant]
     Active Substance: CYANOCOBALAMIN\DEXPANTHENOL\NIACINAMIDE\PYRIDOXINE HYDROCHLORIDE\RIBOFLAVIN 5^-PHOSPHATE SODIUM\THIAMINE HYDROCHLORIDE\VITAMIN B COMPLEX
  8. AMPYRA [Concomitant]
     Active Substance: DALFAMPRIDINE
     Indication: MULTIPLE SCLEROSIS
     Route: 048
     Dates: start: 201012
  9. NARATRIPTAN HCL [Concomitant]
  10. VITAMIN E [Concomitant]
     Active Substance: .ALPHA.-TOCOPHEROL
  11. FLAXSEED [Concomitant]
     Active Substance: FLAX SEED
  12. DULCOLAX NOS [Concomitant]
     Active Substance: BISACODYL OR DOCUSATE SODIUM
  13. TECFIDERA [Suspect]
     Active Substance: DIMETHYL FUMARATE
     Indication: MULTIPLE SCLEROSIS
     Route: 048
     Dates: start: 201502
  14. LORAZEPAM. [Concomitant]
     Active Substance: LORAZEPAM
  15. CITALOPRAM [Concomitant]
     Active Substance: CITALOPRAM HYDROBROMIDE
  16. ECOTRIN [Concomitant]
     Active Substance: ASPIRIN
  17. VITAMIN C [Concomitant]
     Active Substance: ASCORBIC ACID
  18. VITAMIN A AND D [Concomitant]
     Active Substance: LANOLIN\PETROLATUM
  19. ALCLOMETASONE DIPROPIO 0.05% [Concomitant]
  20. CLODERM 0.1% [Concomitant]
  21. DIPHENHYDRAMINE HCL [Concomitant]
     Active Substance: DIPHENHYDRAMINE HYDROCHLORIDE
  22. CALCIUM [Concomitant]
     Active Substance: CALCIUM
  23. GABAPENTIN. [Concomitant]
     Active Substance: GABAPENTIN
     Dates: start: 2015
  24. REBIF [Concomitant]
     Active Substance: INTERFERON BETA-1A
     Dates: start: 20150204
  25. ATIVAN [Concomitant]
     Active Substance: LORAZEPAM

REACTIONS (1)
  - Breast cancer [Not Recovered/Not Resolved]

NARRATIVE: CASE EVENT DATE: 20150727
